FAERS Safety Report 5404763-8 (Version None)
Quarter: 2007Q3

REPORT INFORMATION
  Report Type: 
  Country: None (occurrence: None)
  Receive Date: 20070801
  Receipt Date: 20070716
  Transmission Date: 20080115
  Serious: Yes (Life-Threatening, Hospitalization)
  Sender: FDA-Public Use
  Company Number: DSA_30276_2007

PATIENT
  Sex: Female

DRUGS (5)
  1. LORAZEPAM [Suspect]
     Dosage: (16.5 MG 1X, ORAL)
     Route: 048
     Dates: start: 20070714, end: 20070714
  2. ADUMBRAN (ADUMBRAN - OXAZEPAM) (NOT SPECIFIED) [Suspect]
     Dosage: (20 MG 1X, ORAL)
     Route: 048
     Dates: start: 20070714, end: 20070714
  3. CHLORPROTHIXENE (CHLORPROTHIXENE) [Suspect]
     Dosage: (100 MG 1X, ORAL)
     Route: 048
     Dates: start: 20070714, end: 20070714
  4. SEROQUEL [Suspect]
     Dosage: (400 MG 1X, ORAL)
     Route: 048
     Dates: start: 20070714, end: 20070714
  5. ZOPICLONE (ZOPICLONE) [Suspect]
     Dosage: (30 MG 1X , ORAL)
     Route: 048
     Dates: start: 20070714, end: 20070714

REACTIONS (5)
  - GASTROINTESTINAL SOUNDS ABNORMAL [None]
  - HYPOTENSION [None]
  - MULTIPLE DRUG OVERDOSE [None]
  - SOMNOLENCE [None]
  - SUICIDE ATTEMPT [None]
